FAERS Safety Report 6211894-1 (Version None)
Quarter: 2009Q2

REPORT INFORMATION
  Report Type: 
  Country: None (occurrence: None)
  Receive Date: 20090602
  Receipt Date: 20090520
  Transmission Date: 20091009
  Serious: Yes (Other)
  Sender: FDA-Public Use
  Company Number: US-PFIZER INC-2009218379

PATIENT
  Sex: Male

DRUGS (1)
  1. CHANTIX [Suspect]
     Indication: EX-TOBACCO USER
     Dosage: UNK
     Route: 048
     Dates: start: 20070913

REACTIONS (4)
  - ARM AMPUTATION [None]
  - LOSS OF CONSCIOUSNESS [None]
  - MULTIPLE FRACTURES [None]
  - ROAD TRAFFIC ACCIDENT [None]
